FAERS Safety Report 10756076 (Version 1)
Quarter: 2015Q1

REPORT INFORMATION
  Report Type: Report from Study
  Country: US (occurrence: US)
  Receive Date: 20150202
  Receipt Date: 20150202
  Transmission Date: 20150721
  Serious: Yes (Hospitalization, Other)
  Sender: FDA-Public Use
  Company Number: US-SA-2015SA011027

PATIENT
  Age: 64 Year
  Sex: Female

DRUGS (1)
  1. AUBAGIO [Suspect]
     Active Substance: TERIFLUNOMIDE
     Indication: MULTIPLE SCLEROSIS
     Route: 048
     Dates: start: 20140826

REACTIONS (6)
  - Stress cardiomyopathy [Unknown]
  - Myocardial infarction [Unknown]
  - Memory impairment [Unknown]
  - Knee arthroplasty [Unknown]
  - Tearfulness [Unknown]
  - Pain [Unknown]

NARRATIVE: CASE EVENT DATE: 20150107
